FAERS Safety Report 21387555 (Version 3)
Quarter: 2022Q4

REPORT INFORMATION
  Report Type: Spontaneous
  Country: DE (occurrence: DE)
  Receive Date: 20220928
  Receipt Date: 20221010
  Transmission Date: 20230112
  Serious: Yes (Hospitalization)
  Sender: FDA-Public Use
  Company Number: None

PATIENT
  Age: 74 Year
  Sex: Female

DRUGS (7)
  1. CRIZOTINIB [Interacting]
     Active Substance: CRIZOTINIB
     Dosage: 200 MG, 2X/DAY, 1-0-1-0
     Route: 048
  2. VENLAFAXINE HCL [Interacting]
     Active Substance: VENLAFAXINE HYDROCHLORIDE
     Dosage: 75 MILLIGRAM(75 MG, 0-1-0-0, RETARD-CAPSULES)
     Route: 048
  3. VENLAFAXINE HCL [Interacting]
     Active Substance: VENLAFAXINE HYDROCHLORIDE
     Dosage: 150MILLIGRAM(150 MG, 1-0-0-0, RETARD-CAPSULES)
     Route: 048
  4. OPIPRAMOL [Interacting]
     Active Substance: OPIPRAMOL
     Dosage: 50 MG, AS NEEDED
     Route: 048
  5. METOPROLOL [Interacting]
     Active Substance: METOPROLOL
     Dosage: 23.75 MG, 2X/DAY HALF A TABLET
     Route: 048
  6. RIVAROXABAN [Concomitant]
     Active Substance: RIVAROXABAN
     Dosage: 20 MG, 1X/DAY
     Route: 048
  7. SIMVASTATIN [Concomitant]
     Active Substance: SIMVASTATIN
     Dosage: 20 MG, 1X/DAY
     Route: 048

REACTIONS (7)
  - Electrocardiogram QT prolonged [Unknown]
  - Product prescribing error [Unknown]
  - General physical health deterioration [Unknown]
  - Labelled drug-drug interaction medication error [Unknown]
  - Product monitoring error [Unknown]
  - Atrial fibrillation [Unknown]
  - Tachycardia [Unknown]
